FAERS Safety Report 11174670 (Version 4)
Quarter: 2016Q1

REPORT INFORMATION
  Report Type: Report from Study
  Country: JP (occurrence: JP)
  Receive Date: 20150609
  Receipt Date: 20160112
  Transmission Date: 20160525
  Serious: Yes (Other)
  Sender: FDA-Public Use
  Company Number: JP-OTSUKA-2015_001477

PATIENT
  Age: 56 Year
  Sex: Female

DRUGS (18)
  1. SAMSCA [Suspect]
     Active Substance: TOLVAPTAN
     Dosage: 7.5 MG, QD, IN THE MORNING
     Route: 048
     Dates: start: 20150111, end: 20150112
  2. TOLVAPTAN [Suspect]
     Active Substance: TOLVAPTAN
     Indication: CONGENITAL CYSTIC KIDNEY DISEASE
     Dosage: 22.5 MG, QD, IN THE MORNING
     Route: 048
     Dates: start: 20150115, end: 20150117
  3. TOLVAPTAN [Suspect]
     Active Substance: TOLVAPTAN
     Dosage: 30 MG, QD, IN THE MORNING
     Route: 048
     Dates: start: 20150118, end: 20150120
  4. SAMSCA [Suspect]
     Active Substance: TOLVAPTAN
     Dosage: 11.25 MG, QD, IN THE MORNING
     Route: 048
     Dates: start: 20150113, end: 20150114
  5. TOLVAPTAN [Suspect]
     Active Substance: TOLVAPTAN
     Dosage: 15 MG, QD, IN THE EVENING
     Route: 048
     Dates: start: 20150118, end: 20150126
  6. AMLODIN [Concomitant]
     Active Substance: AMLODIPINE BESYLATE
     Indication: PRODUCT USED FOR UNKNOWN INDICATION
     Dosage: 5 MG, DAILY DOSE
     Route: 048
  7. SAMSCA [Suspect]
     Active Substance: TOLVAPTAN
     Dosage: 3.75 MG, QD, IN THE EVENING
     Route: 048
     Dates: start: 20150109, end: 20150114
  8. TOLVAPTAN [Suspect]
     Active Substance: TOLVAPTAN
     Dosage: 75 MG, QD, IN THE MORNING
     Route: 048
     Dates: start: 20150130, end: 20150201
  9. TOLVAPTAN [Suspect]
     Active Substance: TOLVAPTAN
     Dosage: 90 MG, QD, IN THE MORNING
     Route: 048
     Dates: start: 20150202, end: 20150518
  10. TOLVAPTAN [Suspect]
     Active Substance: TOLVAPTAN
     Dosage: 30 MG, QD, IN THE MORNING
     Route: 048
     Dates: start: 20150519, end: 20150622
  11. SAMSCA [Suspect]
     Active Substance: TOLVAPTAN
     Indication: CONGENITAL CYSTIC KIDNEY DISEASE
     Dosage: 3.75 MG, QD, IN THE MORNING
     Route: 048
     Dates: start: 20150108, end: 20150110
  12. TOLVAPTAN [Suspect]
     Active Substance: TOLVAPTAN
     Dosage: 30 MG, QD, IN THE EVENING
     Route: 048
     Dates: start: 20150130, end: 20150622
  13. TOLVAPTAN [Suspect]
     Active Substance: TOLVAPTAN
     Dosage: 45 MG, QD, IN THE MORNIING
     Route: 048
     Dates: start: 20150121, end: 20150123
  14. CANDESARTAN CILEXETIL. [Concomitant]
     Active Substance: CANDESARTAN CILEXETIL
     Indication: PRODUCT USED FOR UNKNOWN INDICATION
     Dosage: 8 MG, DAILY DOSE
     Route: 048
  15. MAGLAX [Concomitant]
     Active Substance: MAGNESIUM OXIDE
     Indication: PRODUCT USED FOR UNKNOWN INDICATION
     Dosage: 990 MG, DAILY DOSE
     Route: 048
  16. ACICLOVIR [Concomitant]
     Active Substance: ACYCLOVIR
     Indication: ORAL HERPES
     Dosage: UNK, PROPER QUANTITY
     Route: 061
     Dates: start: 20150124, end: 20150128
  17. TOLVAPTAN [Suspect]
     Active Substance: TOLVAPTAN
     Dosage: 7.5 MG, QD, IN THE EVENING
     Route: 048
     Dates: start: 20150115, end: 20150117
  18. TOLVAPTAN [Suspect]
     Active Substance: TOLVAPTAN
     Dosage: 60 MG, QD, IN THE MORNING
     Route: 048
     Dates: start: 20150124, end: 20150129

REACTIONS (4)
  - Hepatic function abnormal [Not Recovered/Not Resolved]
  - Thirst [Recovering/Resolving]
  - Pruritus [Unknown]
  - Oral herpes [Recovering/Resolving]

NARRATIVE: CASE EVENT DATE: 20150121
